FAERS Safety Report 13222213 (Version 1)
Quarter: 2017Q1

REPORT INFORMATION
  Report Type: Other
  Country: US (occurrence: US)
  Receive Date: 20170211
  Receipt Date: 20170211
  Transmission Date: 20170428
  Serious: No
  Sender: FDA-Public Use
  Company Number: US-ACORDA-ACO_132826_2017

PATIENT
  Age: 53 Year
  Sex: Female
  Weight: 49.43 kg

DRUGS (1)
  1. AMPYRA [Suspect]
     Active Substance: DALFAMPRIDINE
     Indication: GAIT DISTURBANCE
     Dosage: 10 MG, BID
     Route: 048
     Dates: start: 201612

REACTIONS (11)
  - Headache [Unknown]
  - Back pain [Unknown]
  - Nasal discomfort [Unknown]
  - Constipation [Unknown]
  - Drug ineffective [Unknown]
  - Throat irritation [Unknown]
  - Asthenia [Unknown]
  - Balance disorder [Unknown]
  - Condition aggravated [Unknown]
  - Pruritus [Unknown]
  - Insomnia [Unknown]
